FAERS Safety Report 26080307 (Version 1)
Quarter: 2025Q4

REPORT INFORMATION
  Report Type: Report from Study
  Country: CA (occurrence: CA)
  Receive Date: 20251124
  Receipt Date: 20251124
  Transmission Date: 20260118
  Serious: Yes (Other)
  Sender: JOHNSON AND JOHNSON
  Company Number: CA-JNJFOC-20250937243

PATIENT
  Age: 34 Year
  Sex: Female
  Weight: 57.5 kg

DRUGS (3)
  1. REMICADE [Suspect]
     Active Substance: INFLIXIMAB
     Indication: Crohn^s disease
     Route: 040
     Dates: start: 20200910
  2. REMICADE [Suspect]
     Active Substance: INFLIXIMAB
     Route: 040
  3. REMICADE [Suspect]
     Active Substance: INFLIXIMAB
     Route: 040

REACTIONS (3)
  - Abortion spontaneous [Unknown]
  - Exposure during pregnancy [Recovered/Resolved]
  - Streptococcal infection [Recovered/Resolved]

NARRATIVE: CASE EVENT DATE: 20250923
